FAERS Safety Report 16824886 (Version 1)
Quarter: 2019Q3

REPORT INFORMATION
  Report Type: Spontaneous
  Country: CN (occurrence: CN)
  Receive Date: 20190918
  Receipt Date: 20190918
  Transmission Date: 20191005
  Serious: Yes (Other)
  Sender: FDA-Public Use
  Company Number: CN-BAXTER-2019BAX018084

PATIENT
  Age: 42 Year
  Sex: Female
  Weight: 63.5 kg

DRUGS (4)
  1. PHARMORUBICIN RD [Suspect]
     Active Substance: EPIRUBICIN
     Indication: BREAST CANCER FEMALE
     Dosage: EPIRUBICIN HYDROCHLORIDE 140 MG DILUTED WITH NS 100 ML, FOR FIRST CHEMOTHERAPY
     Route: 041
     Dates: start: 20190813, end: 20190813
  2. 0.9% SODIUM CHLORIDE INJECTION [Suspect]
     Active Substance: SODIUM CHLORIDE
     Indication: MEDICATION DILUTION
     Dosage: CYCLOPHOSPHAMIDE 980 MG DILUTED WITH NS 50 ML, FOR FIRST CHEMOTHERAPY
     Route: 042
     Dates: start: 20190813, end: 20190813
  3. 0.9% SODIUM CHLORIDE INJECTION [Suspect]
     Active Substance: SODIUM CHLORIDE
     Dosage: EPIRUBICIN HYDROCHLORIDE 140 MG DILUTED WITH NS 100 ML, FOR FIRST CHEMOTHERAPY
     Route: 041
     Dates: start: 20190813, end: 20190813
  4. ENDOXAN [Suspect]
     Active Substance: CYCLOPHOSPHAMIDE
     Indication: BREAST CANCER FEMALE
     Dosage: CYCLOPHOSPHAMIDE 980 MG DILUTED WITH NS 50 ML, FOR FIRST CHEMOTHERAPY
     Route: 042
     Dates: start: 20190813, end: 20190813

REACTIONS (2)
  - Leukopenia [Recovering/Resolving]
  - Agranulocytosis [Recovering/Resolving]

NARRATIVE: CASE EVENT DATE: 20190823
